FAERS Safety Report 22010600 (Version 1)
Quarter: 2023Q1

REPORT INFORMATION
  Report Type: Spontaneous
  Country: US (occurrence: US)
  Receive Date: 20230220
  Receipt Date: 20230220
  Transmission Date: 20230417
  Serious: No
  Sender: FDA-Public Use
  Company Number: US-JNJFOC-20230219578

PATIENT
  Age: 15 Year
  Sex: Male

DRUGS (4)
  1. INVEGA SUSTENNA [Suspect]
     Active Substance: PALIPERIDONE PALMITATE
     Indication: Disruptive mood dysregulation disorder
     Route: 030
  2. INVEGA SUSTENNA [Suspect]
     Active Substance: PALIPERIDONE PALMITATE
  3. INVEGA SUSTENNA [Suspect]
     Active Substance: PALIPERIDONE PALMITATE
  4. MUCINEX [Concomitant]
     Active Substance: GUAIFENESIN

REACTIONS (4)
  - Application site discolouration [Unknown]
  - Injection site swelling [Unknown]
  - Off label use [Unknown]
  - Pyrexia [Unknown]
